FAERS Safety Report 18471177 (Version 1)
Quarter: 2020Q4

REPORT INFORMATION
  Report Type: Spontaneous
  Country: US (occurrence: US)
  Receive Date: 20201105
  Receipt Date: 20201105
  Transmission Date: 20210114
  Serious: Yes (Death, Other)
  Sender: FDA-Public Use
  Company Number: US-PURDUE-USA-2020-0167730

PATIENT
  Sex: Female

DRUGS (1)
  1. OXYCONTIN [Suspect]
     Active Substance: OXYCODONE HYDROCHLORIDE
     Indication: PAIN
     Route: 048

REACTIONS (11)
  - Overdose [Fatal]
  - Anxiety [Unknown]
  - Disturbance in social behaviour [Unknown]
  - Suicide attempt [Unknown]
  - Fear [Unknown]
  - Depression [Unknown]
  - Drug dependence [Unknown]
  - Emotional distress [Unknown]
  - Exposure during pregnancy [Unknown]
  - Drug withdrawal syndrome [Unknown]
  - Illness [Unknown]
